FAERS Safety Report 9643789 (Version 2)
Quarter: 2014Q3

REPORT INFORMATION
  Report Type: Spontaneous
  Country: CA (occurrence: CA)
  Receive Date: 20131024
  Receipt Date: 20140908
  Transmission Date: 20150326
  Serious: Yes (Other)
  Sender: FDA-Public Use
  Company Number: CA-009507513-1310CAN010133

PATIENT
  Sex: Female
  Weight: 58 kg

DRUGS (1)
  1. NUVARING [Suspect]
     Active Substance: ETHINYL ESTRADIOL\ETONOGESTREL
     Indication: CONTRACEPTION
     Dosage: 1 RING Q4WEEKS
     Route: 065
     Dates: start: 2007, end: 2013

REACTIONS (16)
  - Back pain [Unknown]
  - Dyspareunia [Unknown]
  - Pleural effusion [Recovered/Resolved]
  - Pneumonia [Recovering/Resolving]
  - Voluntary redundancy [Unknown]
  - Lung consolidation [Recovered/Resolved]
  - Stress [Unknown]
  - Nasopharyngitis [Unknown]
  - Atelectasis [Unknown]
  - Dyspnoea [Recovered/Resolved]
  - Chest pain [Recovered/Resolved]
  - Pulmonary embolism [Recovering/Resolving]
  - Upper respiratory tract infection [Unknown]
  - Skin lesion [Unknown]
  - Poor quality sleep [Unknown]
  - Pleurisy [Unknown]

NARRATIVE: CASE EVENT DATE: 20090925
